FAERS Safety Report 6086766-6 (Version None)
Quarter: 2009Q1

REPORT INFORMATION
  Report Type: 
  Country: None (occurrence: None)
  Receive Date: 20090223
  Receipt Date: 20090211
  Transmission Date: 20090719
  Serious: Yes (Other)
  Sender: FDA-Public Use
  Company Number: US-JNJFOC-20090202886

PATIENT
  Sex: Male

DRUGS (6)
  1. REMICADE [Suspect]
     Dosage: TOTAL OF THREE INFLIXIMAB INFUSIONS
     Route: 042
  2. REMICADE [Suspect]
     Indication: COLITIS ULCERATIVE
     Route: 042
  3. ASACOL [Concomitant]
  4. ANTIHISTIMINES [Concomitant]
  5. PREDNISONE TAB [Concomitant]
  6. NASAL STEROIDS [Concomitant]

REACTIONS (3)
  - COAGULOPATHY [None]
  - IMPAIRED HEALING [None]
  - SKIN LACERATION [None]
